FAERS Safety Report 25039926 (Version 1)
Quarter: 2025Q1

REPORT INFORMATION
  Report Type: Other
  Country: US (occurrence: US)
  Receive Date: 20250305
  Receipt Date: 20250305
  Transmission Date: 20250409
  Serious: Yes (Hospitalization)
  Sender: ANI
  Company Number: US-ANIPHARMA-015795

PATIENT
  Age: 56 Year
  Sex: Female

DRUGS (11)
  1. MORPHINE SULFATE [Suspect]
     Active Substance: MORPHINE SULFATE
     Indication: Spinal pain
     Route: 037
  2. BUPIVACAINE [Concomitant]
     Active Substance: BUPIVACAINE
     Indication: Spinal pain
  3. ZICONOTIDE [Concomitant]
     Active Substance: ZICONOTIDE
     Indication: Spinal pain
  4. CITALOPRAM [Concomitant]
     Active Substance: CITALOPRAM
     Indication: Product used for unknown indication
  5. BACLOFEN [Concomitant]
     Active Substance: BACLOFEN
     Indication: Product used for unknown indication
  6. LORAZEPAM [Concomitant]
     Active Substance: LORAZEPAM
     Indication: Product used for unknown indication
  7. METHYLPHENIDATE [Concomitant]
     Active Substance: METHYLPHENIDATE
     Indication: Product used for unknown indication
  8. APIXABAN [Concomitant]
     Active Substance: APIXABAN
     Indication: Product used for unknown indication
  9. ONDANSETRON [Concomitant]
     Active Substance: ONDANSETRON
     Indication: Product used for unknown indication
  10. DIPHENHYDRAMINE [Concomitant]
     Active Substance: DIPHENHYDRAMINE
     Indication: Product used for unknown indication
  11. MORPHINE SULFATE [Suspect]
     Active Substance: MORPHINE SULFATE
     Indication: Spinal pain
     Route: 058

REACTIONS (2)
  - Akathisia [Recovering/Resolving]
  - Incorrect route of product administration [Unknown]
